FAERS Safety Report 6702327-7 (Version None)
Quarter: 2010Q2

REPORT INFORMATION
  Report Type: 
  Country: None (occurrence: None)
  Receive Date: 20100429
  Receipt Date: 20100423
  Transmission Date: 20101027
  Serious: Yes (Hospitalization)
  Sender: FDA-Public Use
  Company Number: US-JNJFOC-20090708555

PATIENT
  Sex: Female

DRUGS (8)
  1. TYLENOL-500 [Suspect]
     Route: 048
  2. TYLENOL-500 [Suspect]
     Indication: ANALGESIC THERAPY
     Route: 048
  3. MOTRIN [Suspect]
     Indication: HEADACHE
     Route: 048
  4. MOTRIN [Suspect]
     Indication: ANALGESIC THERAPY
     Route: 048
  5. ZOLOFT [Suspect]
     Indication: DEPRESSION
  6. DIOVAN [Concomitant]
     Indication: HYPERTENSION
  7. BUTALBITAL [Concomitant]
     Indication: HEADACHE
  8. ATENOLOL [Concomitant]
     Indication: DRUG USE FOR UNKNOWN INDICATION

REACTIONS (31)
  - ABNORMAL SENSATION IN EYE [None]
  - AUTOIMMUNE HEPATITIS [None]
  - CHOLESTASIS [None]
  - CONDITION AGGRAVATED [None]
  - DECREASED APPETITE [None]
  - DISORIENTATION [None]
  - DISTICHIASIS [None]
  - DRUG HYPERSENSITIVITY [None]
  - DRY EYE [None]
  - ERYTHEMA MULTIFORME [None]
  - EYE DISORDER [None]
  - EYE PAIN [None]
  - EYE SWELLING [None]
  - FEELING ABNORMAL [None]
  - FOREIGN BODY SENSATION IN EYES [None]
  - GENERAL PHYSICAL HEALTH DETERIORATION [None]
  - HAEMATOCRIT DECREASED [None]
  - HAEMOGLOBIN DECREASED [None]
  - HEADACHE [None]
  - HEPATIC FAILURE [None]
  - KERATITIS [None]
  - LACRIMATION INCREASED [None]
  - MAJOR DEPRESSION [None]
  - METAPLASIA [None]
  - PAIN [None]
  - PANCREATITIS [None]
  - PYREXIA [None]
  - STEVENS-JOHNSON SYNDROME [None]
  - TOXIC EPIDERMAL NECROLYSIS [None]
  - TRICHIASIS [None]
  - VIRAL INFECTION [None]
